FAERS Safety Report 23026433 (Version 1)
Quarter: 2023Q4

REPORT INFORMATION
  Report Type: Spontaneous
  Country: US (occurrence: US)
  Receive Date: 20231004
  Receipt Date: 20231004
  Transmission Date: 20240110
  Serious: Yes (Other)
  Sender: FDA-Public Use
  Company Number: US-drreddys-LIT/USA/23/0178614

PATIENT
  Age: 67 Year
  Sex: Male

DRUGS (10)
  1. LORAZEPAM [Suspect]
     Active Substance: LORAZEPAM
     Indication: Tremor
     Route: 042
  2. LORAZEPAM [Suspect]
     Active Substance: LORAZEPAM
     Indication: Status epilepticus
  3. LEVETIRACETAM [Suspect]
     Active Substance: LEVETIRACETAM
     Indication: Status epilepticus
  4. DIAZEPAM [Suspect]
     Active Substance: DIAZEPAM
     Indication: Tremor
     Route: 042
  5. DIAZEPAM [Suspect]
     Active Substance: DIAZEPAM
     Indication: Status epilepticus
  6. MIDAZOLAM [Suspect]
     Active Substance: MIDAZOLAM
     Indication: Status epilepticus
     Dosage: 5 MG/H
  7. KETAMINE [Suspect]
     Active Substance: KETAMINE
     Indication: Status epilepticus
     Dosage: 146 MG/H
  8. ACETAMINOPHEN [Concomitant]
     Active Substance: ACETAMINOPHEN
     Indication: Product used for unknown indication
  9. AMIFAMPRIDINE [Concomitant]
     Active Substance: AMIFAMPRIDINE
     Indication: Product used for unknown indication
  10. CHARCOAL [Concomitant]
     Active Substance: ACTIVATED CHARCOAL
     Indication: Product used for unknown indication

REACTIONS (1)
  - Drug ineffective [Unknown]
